FAERS Safety Report 14255498 (Version 1)
Quarter: 2017Q4

REPORT INFORMATION
  Report Type: Spontaneous
  Country: US (occurrence: None)
  Receive Date: 20171206
  Receipt Date: 20171206
  Transmission Date: 20180321
  Serious: Yes (Life-Threatening, Hospitalization)
  Sender: FDA-Public Use
  Company Number: None

PATIENT
  Age: 10 Month
  Sex: Female
  Weight: 7.45 kg

DRUGS (1)
  1. TINY COLD TABLETS [Suspect]
     Active Substance: HOMEOPATHICS
     Indication: RHINORRHOEA
     Dosage: 2 PILLS EVERY 15 MIN FOR 4 DOSES - THEN HOURLY, BY MOUTH
     Route: 048
     Dates: start: 20171113, end: 20171113

REACTIONS (2)
  - Crying [None]
  - Unresponsive to stimuli [None]

NARRATIVE: CASE EVENT DATE: 20171113
